FAERS Safety Report 12646986 (Version 1)
Quarter: 2016Q3

REPORT INFORMATION
  Report Type: Spontaneous
  Country: US (occurrence: US)
  Receive Date: 20160812
  Receipt Date: 20160812
  Transmission Date: 20161109
  Serious: Yes (Other)
  Sender: FDA-Public Use
  Company Number: US-UNITED THERAPEUTICS-UNT-2016-012423

PATIENT
  Sex: Female

DRUGS (1)
  1. REMODULIN [Suspect]
     Active Substance: TREPROSTINIL
     Indication: PULMONARY ARTERIAL HYPERTENSION
     Dosage: 0.0059 ?G/KG, CONTINUING
     Route: 058
     Dates: start: 201605

REACTIONS (6)
  - Hyperhidrosis [Unknown]
  - Chest discomfort [Unknown]
  - Treatment noncompliance [Unknown]
  - Ascites [Unknown]
  - Heart rate increased [Unknown]
  - Drug dose omission [Unknown]

NARRATIVE: CASE EVENT DATE: 201607
